FAERS Safety Report 9187225 (Version 2)
Quarter: 2013Q2

REPORT INFORMATION
  Report Type: Spontaneous
  Country: US (occurrence: US)
  Receive Date: 20130325
  Receipt Date: 20130422
  Transmission Date: 20140414
  Serious: Yes (Hospitalization)
  Sender: FDA-Public Use
  Company Number: US-ASTRAZENECA-2013SE18168

PATIENT
  Age: 63 Year
  Sex: Male
  Weight: 77.1 kg

DRUGS (14)
  1. SYMBICORT [Suspect]
     Indication: CHRONIC OBSTRUCTIVE PULMONARY DISEASE
     Dosage: 160 MCG, TWO PUFFS, BID
     Route: 055
     Dates: start: 2011
  2. SYMBICORT [Suspect]
     Indication: ASTHMA
     Dosage: 160 MCG, TWO PUFFS, BID
     Route: 055
     Dates: start: 2011
  3. SYMBICORT [Suspect]
     Indication: CHRONIC OBSTRUCTIVE PULMONARY DISEASE
     Route: 055
  4. SYMBICORT [Suspect]
     Indication: ASTHMA
     Route: 055
  5. ZESTORETIC [Suspect]
     Dosage: 10+12.5 MG DAILY
     Route: 048
  6. METOPROLOL ER SUCCINATE [Suspect]
     Route: 048
  7. LEVOTHYROXINE [Concomitant]
     Route: 048
  8. TAMSULOSIN [Concomitant]
     Route: 048
  9. NORTRIPTYLINE [Concomitant]
     Route: 048
  10. VERAPAMIL ER [Concomitant]
     Route: 048
  11. TRAZADONE [Concomitant]
     Indication: SLEEP DISORDER
     Route: 048
  12. GABAPENTIN [Concomitant]
     Indication: PAIN
     Route: 048
  13. GABAPENTIN [Concomitant]
     Indication: PAIN
     Route: 048
  14. VITAMINS [Concomitant]
     Route: 048

REACTIONS (4)
  - Accident at work [Unknown]
  - Hernia [Recovered/Resolved]
  - Pain [Not Recovered/Not Resolved]
  - Asthma [Recovered/Resolved]
